FAERS Safety Report 5779955-9 (Version None)
Quarter: 2008Q2

REPORT INFORMATION
  Report Type: 
  Country: None (occurrence: None)
  Receive Date: 20080620
  Receipt Date: 20080620
  Transmission Date: 20081010
  Serious: Yes (Hospitalization)
  Sender: FDA-Public Use
  Company Number: None

PATIENT
  Age: 53 Year
  Sex: Female
  Weight: 91.173 kg

DRUGS (1)
  1. HEPARIN LOCK-FLUSH [Suspect]
     Dosage: FLUSH
     Dates: start: 20080601, end: 20080616

REACTIONS (4)
  - EOSINOPHILIA [None]
  - POOR QUALITY DRUG ADMINISTERED [None]
  - RENAL FAILURE [None]
  - THERAPEUTIC PRODUCT CONTAMINATION [None]
